FAERS Safety Report 4653164-9 (Version None)
Quarter: 2005Q2

REPORT INFORMATION
  Report Type: 
  Country: None (occurrence: None)
  Receive Date: 20050503
  Receipt Date: 20050503
  Transmission Date: 20051028
  Serious: Yes (Congenital Anomaly)
  Sender: FDA-Public Use
  Company Number: None

PATIENT
  Sex: Female

DRUGS (1)
  1. ZOFRAN [Suspect]
     Dosage: INJECTED
     Dates: start: 20030217

REACTIONS (3)
  - CONGENITAL ANOMALY IN OFFSPRING [None]
  - DRUG EXPOSURE DURING PREGNANCY [None]
  - FINGER DEFORMITY [None]
